FAERS Safety Report 21486519 (Version 2)
Quarter: 2022Q4

REPORT INFORMATION
  Report Type: Report from Study
  Country: MX (occurrence: MX)
  Receive Date: 20221020
  Receipt Date: 20221107
  Transmission Date: 20230112
  Serious: Yes (Other)
  Sender: FDA-Public Use
  Company Number: MX-BAYER-2022A144428

PATIENT
  Age: 61 Year
  Sex: Female

DRUGS (1)
  1. NEXAVAR [Suspect]
     Active Substance: SORAFENIB
     Indication: Hepatocellular carcinoma
     Dosage: 400 MG, BID
     Route: 048
     Dates: start: 20221001

REACTIONS (5)
  - Burn oral cavity [Recovered/Resolved with Sequelae]
  - Hypoaesthesia [Recovered/Resolved]
  - Frequent bowel movements [Recovered/Resolved]
  - Diarrhoea [None]
  - Dry mouth [None]

NARRATIVE: CASE EVENT DATE: 20221012
